FAERS Safety Report 8226321-2 (Version None)
Quarter: 2012Q1

REPORT INFORMATION
  Report Type: 
  Country: None (occurrence: None)
  Receive Date: 20120321
  Receipt Date: 20120319
  Transmission Date: 20120608
  Serious: Yes (Death)
  Sender: FDA-Public Use
  Company Number: FR-ROCHE-1048348

PATIENT
  Sex: Male
  Weight: 51 kg

DRUGS (6)
  1. AMANTADINE HCL [Concomitant]
  2. LEVODOPA [Concomitant]
  3. REQUIP [Concomitant]
     Dosage: 2 DOSES DAILY
  4. VEMURAFENIB [Suspect]
     Indication: MALIGNANT MELANOMA
     Route: 048
     Dates: start: 20120202, end: 20120302
  5. CARBIDOPA [Concomitant]
  6. FLUTAMIDE [Concomitant]

REACTIONS (1)
  - MYOCARDIAL INFARCTION [None]
